FAERS Safety Report 25969674 (Version 2)
Quarter: 2025Q4

REPORT INFORMATION
  Report Type: Spontaneous
  Country: CN (occurrence: CN)
  Receive Date: 20251028
  Receipt Date: 20251214
  Transmission Date: 20260118
  Serious: Yes (Hospitalization, Other)
  Sender: BRACCO
  Company Number: CN-BRACCO-2025CN07325

PATIENT
  Age: 46 Year
  Sex: Male

DRUGS (1)
  1. IOPAMIDOL [Suspect]
     Active Substance: IOPAMIDOL
     Indication: Computerised tomogram heart
     Dosage: 35 G, SINGLE
     Dates: start: 20251016, end: 20251016

REACTIONS (7)
  - Foaming at mouth [Recovering/Resolving]
  - Confusional state [Recovering/Resolving]
  - Loss of consciousness [Recovering/Resolving]
  - Unresponsive to stimuli [Recovering/Resolving]
  - Seizure [Recovering/Resolving]
  - Hyperhidrosis [Recovering/Resolving]
  - Cyanosis [Recovering/Resolving]

NARRATIVE: CASE EVENT DATE: 20251016
